FAERS Safety Report 12643068 (Version 1)
Quarter: 2016Q3

REPORT INFORMATION
  Report Type: Spontaneous
  Country: US (occurrence: US)
  Receive Date: 20160811
  Receipt Date: 20160811
  Transmission Date: 20161109
  Serious: No
  Sender: FDA-Public Use
  Company Number: US-BEH-2016072063

PATIENT
  Sex: Female
  Weight: 71.2 kg

DRUGS (24)
  1. HIZENTRA [Suspect]
     Active Substance: HUMAN IMMUNOGLOBULIN G
     Indication: COMBINED IMMUNODEFICIENCY
     Dosage: UNK
     Route: 058
  2. HIZENTRA [Suspect]
     Active Substance: HUMAN IMMUNOGLOBULIN G
     Dosage: UNK
     Route: 058
  3. HIZENTRA [Suspect]
     Active Substance: HUMAN IMMUNOGLOBULIN G
     Dosage: 15 G, QW
     Route: 058
     Dates: start: 20160223
  4. HIZENTRA [Suspect]
     Active Substance: HUMAN IMMUNOGLOBULIN G
     Dosage: UNK
     Route: 058
  5. SPIRIVA [Concomitant]
     Active Substance: TIOTROPIUM BROMIDE MONOHYDRATE
  6. VALSARTAN. [Concomitant]
     Active Substance: VALSARTAN
  7. MUCINEX [Concomitant]
     Active Substance: GUAIFENESIN
  8. EPIPEN [Concomitant]
     Active Substance: EPINEPHRINE
  9. PREDNISONE. [Concomitant]
     Active Substance: PREDNISONE
  10. CIPRO [Concomitant]
     Active Substance: CIPROFLOXACIN HYDROCHLORIDE
  11. ITRACONAZOLE. [Concomitant]
     Active Substance: ITRACONAZOLE
  12. IPRATROPIUM [Concomitant]
     Active Substance: IPRATROPIUM
  13. ZYRTEC [Concomitant]
     Active Substance: CETIRIZINE HYDROCHLORIDE
  14. ACETAMINOPHEN. [Concomitant]
     Active Substance: ACETAMINOPHEN
  15. LMX                                /00033401/ [Concomitant]
  16. SINGULAIR [Concomitant]
     Active Substance: MONTELUKAST SODIUM
  17. ALBUTEROL                          /00139501/ [Concomitant]
     Active Substance: ALBUTEROL
  18. BACTRIM DS [Concomitant]
     Active Substance: SULFAMETHOXAZOLE\TRIMETHOPRIM
  19. DIPHENHYDRAMINE. [Concomitant]
     Active Substance: DIPHENHYDRAMINE
  20. PROTONIX [Concomitant]
     Active Substance: PANTOPRAZOLE SODIUM
  21. CLOTRIMAZOLE. [Concomitant]
     Active Substance: CLOTRIMAZOLE
  22. ASMANEX [Concomitant]
     Active Substance: MOMETASONE FUROATE
  23. MELATONIN [Concomitant]
     Active Substance: MELATONIN
  24. FOLIC ACID. [Concomitant]
     Active Substance: FOLIC ACID

REACTIONS (1)
  - Infusion site extravasation [Unknown]
